FAERS Safety Report 7742334-9 (Version None)
Quarter: 2011Q3

REPORT INFORMATION
  Report Type: 
  Country: None (occurrence: None)
  Receive Date: 20110829
  Receipt Date: 20110817
  Transmission Date: 20111222
  Serious: Yes (Hospitalization)
  Sender: FDA-Public Use
  Company Number: 2010SP058760

PATIENT
  Age: 34 Year
  Sex: Female
  Weight: 106.1417 kg

DRUGS (3)
  1. LEVOTHYROXINE SODIUM [Concomitant]
  2. NUVARING [Suspect]
     Indication: CONTRACEPTION
     Dates: start: 20060201, end: 20081101
  3. NUVARING [Suspect]
     Indication: DYSMENORRHOEA
     Dates: start: 20060201, end: 20081101

REACTIONS (9)
  - PULMONARY EMBOLISM [None]
  - SINUS TACHYCARDIA [None]
  - ABDOMINAL PAIN [None]
  - DEEP VEIN THROMBOSIS [None]
  - ANGINA PECTORIS [None]
  - PLEURITIC PAIN [None]
  - PLANTAR FASCIITIS [None]
  - HYPOTHYROIDISM [None]
  - HYPERCOAGULATION [None]
